FAERS Safety Report 5032021-2 (Version None)
Quarter: 2006Q2

REPORT INFORMATION
  Report Type: 
  Country: None (occurrence: None)
  Receive Date: 20060608
  Receipt Date: 20060519
  Transmission Date: 20061013
  Serious: Yes (Life-Threatening)
  Sender: FDA-Public Use
  Company Number: 200610713BYL

PATIENT
  Age: 6 Year
  Sex: Male

DRUGS (1)
  1. GAMIMUNE N 5% [Suspect]
     Indication: KAWASAKI'S DISEASE
     Dosage: INTRAVENOUS DRIP
     Route: 041
     Dates: start: 20060518

REACTIONS (4)
  - BLOOD PRESSURE DECREASED [None]
  - HYPOTHERMIA [None]
  - MENINGITIS ASEPTIC [None]
  - SOMNOLENCE [None]
